FAERS Safety Report 17673415 (Version 1)
Quarter: 2020Q2

REPORT INFORMATION
  Report Type: Report from Study
  Country: US (occurrence: US)
  Receive Date: 20200415
  Receipt Date: 20200415
  Transmission Date: 20200713
  Serious: Yes (Other)
  Sender: FDA-Public Use
  Company Number: NVSC2020US099544

PATIENT
  Sex: Female

DRUGS (1)
  1. PIQRAY [Suspect]
     Active Substance: ALPELISIB
     Indication: PRODUCT USED FOR UNKNOWN INDICATION
     Route: 048

REACTIONS (6)
  - Blood urea abnormal [Unknown]
  - Dehydration [Unknown]
  - Blood glucose increased [Unknown]
  - Blood creatinine abnormal [Unknown]
  - Vomiting [Unknown]
  - Diarrhoea [Unknown]
